FAERS Safety Report 23410511 (Version 1)
Quarter: 2024Q1

REPORT INFORMATION
  Report Type: Spontaneous
  Country: US (occurrence: US)
  Receive Date: 20240117
  Receipt Date: 20240117
  Transmission Date: 20240409
  Serious: Yes (Hospitalization, Other)
  Sender: FDA-Public Use
  Company Number: US-Calliditas-2024CAL00027

PATIENT
  Age: 69 Year
  Sex: Male

DRUGS (2)
  1. TARPEYO [Suspect]
     Active Substance: BUDESONIDE
     Indication: IgA nephropathy
     Route: 048
     Dates: start: 20230328
  2. LASIX [Suspect]
     Active Substance: FUROSEMIDE

REACTIONS (3)
  - Cardiac failure congestive [Unknown]
  - Fluid retention [Unknown]
  - Renal impairment [Recovered/Resolved]
